FAERS Safety Report 5029769-2 (Version None)
Quarter: 2006Q2

REPORT INFORMATION
  Report Type: 
  Country: None (occurrence: None)
  Receive Date: 20060620
  Receipt Date: 20060113
  Transmission Date: 20061013
  Serious: Yes (Disabling)
  Sender: FDA-Public Use
  Company Number: US-ROCHE-432508

PATIENT
  Age: 58 Year
  Sex: Female
  Weight: 117.9 kg

DRUGS (2)
  1. ACCUTANE [Suspect]
     Route: 048
     Dates: start: 20040211, end: 20040411
  2. ACCUTANE [Suspect]
     Route: 048
     Dates: start: 20040412

REACTIONS (43)
  - ACROCHORDON [None]
  - ANAL FISSURE [None]
  - ANAL FISTULA [None]
  - ARTHRALGIA [None]
  - ARTHRITIS [None]
  - BACK PAIN [None]
  - BLOOD ALKALINE PHOSPHATASE INCREASED [None]
  - BLOOD TRIGLYCERIDES INCREASED [None]
  - BONE PAIN [None]
  - CARDIAC DISORDER [None]
  - CHROMATURIA [None]
  - CLOSTRIDIUM DIFFICILE COLITIS [None]
  - CROHN'S DISEASE [None]
  - DIZZINESS [None]
  - DRY EYE [None]
  - DYSPHONIA [None]
  - EYE IRRITATION [None]
  - FATIGUE [None]
  - FRACTURE [None]
  - GASTROOESOPHAGEAL REFLUX DISEASE [None]
  - HAEMORRHOIDS [None]
  - HEADACHE [None]
  - HERPES ZOSTER [None]
  - IMPINGEMENT SYNDROME [None]
  - INFLAMMATORY BOWEL DISEASE [None]
  - INSOMNIA [None]
  - LIP DRY [None]
  - LOW DENSITY LIPOPROTEIN INCREASED [None]
  - MENOPAUSE [None]
  - NASAL DRYNESS [None]
  - NECK INJURY [None]
  - NIGHT BLINDNESS [None]
  - OBESITY [None]
  - OEDEMA PERIPHERAL [None]
  - PERIARTHRITIS [None]
  - PHLEBOLITH [None]
  - RENAL DISORDER [None]
  - ROTATOR CUFF SYNDROME [None]
  - SHOULDER PAIN [None]
  - SKIN ULCER [None]
  - SOMNOLENCE [None]
  - TONGUE BLACK HAIRY [None]
  - VAGINAL BURNING SENSATION [None]
